FAERS Safety Report 8060695-0 (Version None)
Quarter: 2012Q1

REPORT INFORMATION
  Report Type: 
  Country: None (occurrence: None)
  Receive Date: 20120120
  Receipt Date: 20120116
  Transmission Date: 20120608
  Serious: Yes (Other)
  Sender: FDA-Public Use
  Company Number: US-GILEAD-2012-0049384

PATIENT
  Sex: Male

DRUGS (2)
  1. TRUVADA [Suspect]
     Indication: HIV INFECTION
     Route: 065
  2. TRUVADA [Suspect]
     Indication: HEPATITIS B

REACTIONS (4)
  - RENAL DISORDER [None]
  - OSTEOPOROSIS [None]
  - URINE PHOSPHORUS INCREASED [None]
  - FRACTURE [None]
